FAERS Safety Report 19416191 (Version 1)
Quarter: 2021Q2

REPORT INFORMATION
  Report Type: Spontaneous
  Country: US (occurrence: US)
  Receive Date: 20210614
  Receipt Date: 20210614
  Transmission Date: 20210717
  Serious: Yes (Hospitalization)
  Sender: FDA-Public Use
  Company Number: None

PATIENT
  Age: 71 Year
  Sex: Male

DRUGS (1)
  1. BRAFTOVI [Suspect]
     Active Substance: ENCORAFENIB
     Indication: COLORECTAL CANCER
     Route: 048
     Dates: start: 20210605, end: 20210608

REACTIONS (3)
  - Renal pain [None]
  - Dysuria [None]
  - Renal impairment [None]

NARRATIVE: CASE EVENT DATE: 20210608
